FAERS Safety Report 25665242 (Version 1)
Quarter: 2025Q3

REPORT INFORMATION
  Report Type: Spontaneous
  Country: EU (occurrence: EU)
  Receive Date: 20250811
  Receipt Date: 20250811
  Transmission Date: 20251021
  Serious: Yes (Other)
  Sender: KYOWA
  Company Number: EU-KYOWAKIRIN-2025KK015172

PATIENT

DRUGS (2)
  1. CRYSVITA [Suspect]
     Active Substance: BUROSUMAB-TWZA
     Indication: Product used for unknown indication
     Route: 065
  2. CRYSVITA [Suspect]
     Active Substance: BUROSUMAB-TWZA
     Route: 065

REACTIONS (4)
  - Growth retardation [Unknown]
  - Blood phosphorus decreased [Not Recovered/Not Resolved]
  - Blood alkaline phosphatase increased [Recovering/Resolving]
  - Blood parathyroid hormone decreased [Unknown]

NARRATIVE: CASE EVENT DATE: 20250515
